FAERS Safety Report 25136526 (Version 1)
Quarter: 2025Q1

REPORT INFORMATION
  Report Type: Spontaneous
  Country: US (occurrence: US)
  Receive Date: 20250328
  Receipt Date: 20250328
  Transmission Date: 20250408
  Serious: Yes (Other)
  Sender: PFIZER
  Company Number: US-PFIZER INC-PV202500036814

PATIENT
  Age: 61 Year
  Sex: Female
  Weight: 69.85 kg

DRUGS (2)
  1. PREMPRO [Suspect]
     Active Substance: ESTROGENS, CONJUGATED\MEDROXYPROGESTERONE ACETATE
     Indication: Atrophic vulvovaginitis
     Dosage: TAKE 1 TABLET BY MOUTH DAILY
     Route: 048
  2. ESTRADIOL [Suspect]
     Active Substance: ESTRADIOL

REACTIONS (8)
  - Thrombosis [Unknown]
  - Postmenopausal haemorrhage [Recovered/Resolved]
  - Intermenstrual bleeding [Unknown]
  - Muscle spasms [Not Recovered/Not Resolved]
  - Hormone level abnormal [Unknown]
  - Headache [Unknown]
  - Weight increased [Unknown]
  - Insomnia [Unknown]

NARRATIVE: CASE EVENT DATE: 20210101
